FAERS Safety Report 15448440 (Version 6)
Quarter: 2023Q4

REPORT INFORMATION
  Report Type: Report from Study
  Country: PT (occurrence: PT)
  Receive Date: 20180929
  Receipt Date: 20231109
  Transmission Date: 20240110
  Serious: Yes (Life-Threatening, Other)
  Sender: FDA-Public Use
  Company Number: CN-GKKIN-201809014-PI511454-2

PATIENT
  Age: 30 Year
  Sex: Male

DRUGS (30)
  1. ALPRAZOLAM [Suspect]
     Active Substance: ALPRAZOLAM
     Indication: Chronic hepatitis C
     Dosage: UNK
     Route: 065
  2. ALPRAZOLAM [Suspect]
     Active Substance: ALPRAZOLAM
     Indication: Hepatitis C
     Dosage: UNK,S-ALPRAZOLAM-CNS-BENZODIAZEPINE, 1 ML OF TRIAMCINOLONE 40 MG INJECTED
     Route: 048
  3. ALPRAZOLAM [Suspect]
     Active Substance: ALPRAZOLAM
     Indication: HIV infection
     Dosage: UNK,1 ML OF TRIAMCINOLONE 40 MG INJECTED
     Route: 048
  4. BUPRENORPHINE [Suspect]
     Active Substance: BUPRENORPHINE
     Indication: HIV infection
     Dosage: UNK
     Route: 065
  5. BUPRENORPHINE [Suspect]
     Active Substance: BUPRENORPHINE
     Indication: Chronic hepatitis C
     Dosage: 1 ML OF TRIAMCINOLONE 40 MG INJECTED ()
     Route: 048
  6. BUPRENORPHINE [Suspect]
     Active Substance: BUPRENORPHINE
     Indication: Hepatitis C
  7. TRAMADOL [Suspect]
     Active Substance: TRAMADOL\TRAMADOL HYDROCHLORIDE
     Indication: Chronic hepatitis C
     Dosage: UNK
     Route: 065
  8. TRAMADOL [Suspect]
     Active Substance: TRAMADOL\TRAMADOL HYDROCHLORIDE
     Indication: Hepatitis C
     Dosage: UNK, 1 ML OF TRIAMCINOLONE 40 MG INJECTED, S-TRAMADOL-CNS-OPIOID
     Route: 048
  9. TRAMADOL [Suspect]
     Active Substance: TRAMADOL\TRAMADOL HYDROCHLORIDE
     Indication: HIV infection
  10. ZIDOVUDINE [Suspect]
     Active Substance: ZIDOVUDINE
     Indication: Chronic hepatitis C
     Dosage: UNK
     Route: 048
  11. ZIDOVUDINE [Suspect]
     Active Substance: ZIDOVUDINE
     Indication: Hepatitis C
  12. ZIDOVUDINE [Suspect]
     Active Substance: ZIDOVUDINE
     Indication: HIV infection
  13. ZIDOVUDINE [Suspect]
     Active Substance: ZIDOVUDINE
     Indication: HIV infection CDC category C
  14. AMPHOTERICIN B [Suspect]
     Active Substance: AMPHOTERICIN B
     Indication: HIV infection
     Dosage: UNK (1 ML OF TRIAMCINOLONE 40 MG INJECTED)
     Route: 048
  15. AMPHOTERICIN B [Suspect]
     Active Substance: AMPHOTERICIN B
     Indication: Hepatitis C
     Dosage: UNK
     Route: 065
  16. AMPHOTERICIN B [Suspect]
     Active Substance: AMPHOTERICIN B
     Indication: Chronic hepatitis C
  17. DIDANOSINE [Suspect]
     Active Substance: DIDANOSINE
     Indication: HIV infection
     Dosage: UNK
     Route: 065
  18. DIDANOSINE [Suspect]
     Active Substance: DIDANOSINE
     Indication: Chronic hepatitis C
     Dosage: 1 ML OF TRIAMCINOLONE 40 MG INJECTED
     Route: 048
  19. DIDANOSINE [Suspect]
     Active Substance: DIDANOSINE
     Indication: Hepatitis C
  20. DIDANOSINE [Suspect]
     Active Substance: DIDANOSINE
     Indication: HIV infection CDC category C
  21. DIDANOSINE [Suspect]
     Active Substance: DIDANOSINE
     Indication: Antiretroviral therapy
  22. FLURAZEPAM [Suspect]
     Active Substance: FLURAZEPAM HYDROCHLORIDE
     Indication: Chronic hepatitis C
     Dosage: UNK
     Route: 065
  23. FLURAZEPAM [Suspect]
     Active Substance: FLURAZEPAM HYDROCHLORIDE
     Indication: Hepatitis C
     Dosage: UNK (1 ML OF TRIAMCINOLONE 40 MG INJECTED)
     Route: 048
  24. FLURAZEPAM [Suspect]
     Active Substance: FLURAZEPAM HYDROCHLORIDE
     Indication: HIV infection
     Dosage: S-FLURAZEPAM-CNS-BENZODIAZEPINE
     Route: 065
  25. LOPINAVIR\RITONAVIR [Suspect]
     Active Substance: LOPINAVIR\RITONAVIR
     Indication: Hepatitis C
     Dosage: UNK, ALONG 1 ML OF TRIAMCINOLONE 40 MG INJECTED ()
     Route: 048
  26. LOPINAVIR\RITONAVIR [Suspect]
     Active Substance: LOPINAVIR\RITONAVIR
     Indication: Chronic hepatitis C
     Dosage: UNK
     Route: 048
  27. LOPINAVIR\RITONAVIR [Suspect]
     Active Substance: LOPINAVIR\RITONAVIR
     Indication: HIV infection
     Dosage: UNK
     Route: 065
  28. LOPINAVIR\RITONAVIR [Suspect]
     Active Substance: LOPINAVIR\RITONAVIR
     Indication: HIV infection CDC category C
  29. OXAZEPAM [Suspect]
     Active Substance: OXAZEPAM
     Indication: Product used for unknown indication
     Dosage: UNK, 1 ML OF TRIAMCINOLONE 40 MG INJECTED,S-OXAZEPAM-CNS-BENZODIAZEPINE
     Route: 048
  30. TRIAMCINOLONE [Suspect]
     Active Substance: TRIAMCINOLONE
     Indication: Product used for unknown indication
     Dosage: UNK (1 ML OF TRIAMCINOLONE 40 MG INJECTED)
     Route: 051

REACTIONS (6)
  - Hepatic fibrosis [Unknown]
  - Drug-induced liver injury [Recovered/Resolved]
  - Drug abuse [Recovered/Resolved]
  - Off label use [Recovered/Resolved]
  - Product use issue [Recovered/Resolved]
  - Transaminases increased [Unknown]
